FAERS Safety Report 6453626-8 (Version None)
Quarter: 2009Q4

REPORT INFORMATION
  Report Type: 
  Country: None (occurrence: None)
  Receive Date: 20091124
  Receipt Date: 20091109
  Transmission Date: 20100525
  Serious: Yes (Hospitalization, Other)
  Sender: FDA-Public Use
  Company Number: PHHY2009IE49645

PATIENT
  Sex: Female

DRUGS (1)
  1. CLOZARIL [Suspect]
     Indication: SCHIZOPHRENIA
     Dosage: 625 MG, UNK
     Dates: start: 20000717

REACTIONS (3)
  - ABDOMINAL PAIN [None]
  - ABSCESS [None]
  - DIABETES MELLITUS [None]
